FAERS Safety Report 7818392-X (Version None)
Quarter: 2011Q4

REPORT INFORMATION
  Report Type: 
  Country: None (occurrence: None)
  Receive Date: 20111017
  Receipt Date: 20111006
  Transmission Date: 20120403
  Serious: Yes (Other)
  Sender: FDA-Public Use
  Company Number: AU-ASTRAZENECA-2011SE59873

PATIENT
  Sex: Male

DRUGS (2)
  1. XYLOCAINE VISCOUS [Suspect]
     Indication: GASTROOESOPHAGEAL REFLUX DISEASE
     Dosage: PATIENT DRANK A WHOLE BOTTLE
     Route: 048
  2. MYLANTA [Suspect]
     Indication: GASTROOESOPHAGEAL REFLUX DISEASE
     Dosage: PATIENT DRANK THE WHOLE BOTTLE
     Route: 065

REACTIONS (2)
  - OVERDOSE [None]
  - CONVULSION [None]
